FAERS Safety Report 4319446-5 (Version None)
Quarter: 2004Q1

REPORT INFORMATION
  Report Type: 
  Country: None (occurrence: None)
  Receive Date: 20040316
  Receipt Date: 20040301
  Transmission Date: 20041129
  Serious: Yes (Hospitalization)
  Sender: FDA-Public Use
  Company Number: USA040360616

PATIENT
  Age: 83 Year
  Sex: Female
  Weight: 45 kg

DRUGS (5)
  1. FORTEO [Suspect]
     Dates: start: 20031101
  2. EVISTA [Suspect]
  3. LASIX [Concomitant]
  4. COUMADIN [Concomitant]
  5. FOSAMAX [Concomitant]

REACTIONS (9)
  - BLOOD PRESSURE INCREASED [None]
  - CARDIAC DISORDER [None]
  - DIFFICULTY IN WALKING [None]
  - FLUID RETENTION [None]
  - PALPITATIONS [None]
  - PHARMACEUTICAL PRODUCT COMPLAINT [None]
  - SWELLING [None]
  - URINARY TRACT INFECTION [None]
  - WEIGHT INCREASED [None]
